FAERS Safety Report 8361568-6 (Version None)
Quarter: 2012Q2

REPORT INFORMATION
  Report Type: 
  Country: None (occurrence: None)
  Receive Date: 20120514
  Receipt Date: 20120427
  Transmission Date: 20120825
  Serious: Yes (Life-Threatening)
  Sender: FDA-Public Use
  Company Number: 2012R1-56075

PATIENT
  Age: 85 Year
  Sex: Female

DRUGS (6)
  1. PREDNISOLONE [Concomitant]
  2. AMLODIPINE [Concomitant]
  3. LANSOPRAZOLE [Concomitant]
  4. AMITRIPTYLINE HCL [Concomitant]
  5. INDAPAMIDE [Concomitant]
  6. RAMIPRIL [Suspect]
     Indication: HYPERTENSION
     Dosage: , ORAL
     Route: 048
     Dates: start: 20120403

REACTIONS (1)
  - CEREBROVASCULAR ACCIDENT [None]
